FAERS Safety Report 18815994 (Version 1)
Quarter: 2021Q1

REPORT INFORMATION
  Report Type: Spontaneous
  Country: US (occurrence: US)
  Receive Date: 20210201
  Receipt Date: 20210201
  Transmission Date: 20210419
  Serious: Yes (Other)
  Sender: FDA-Public Use
  Company Number: None

PATIENT
  Age: 35 Year
  Sex: Female

DRUGS (1)
  1. BUPRENORPHINE HCL/NALOXONE HCL [Suspect]
     Active Substance: BUPRENORPHINE\NALOXONE
     Indication: DRUG DEPENDENCE
     Route: 060
     Dates: start: 20201019

REACTIONS (6)
  - Swollen tongue [None]
  - Headache [None]
  - Rash [None]
  - Fatigue [None]
  - Product dosage form issue [None]
  - Feeling abnormal [None]

NARRATIVE: CASE EVENT DATE: 20210119
